FAERS Safety Report 25178302 (Version 1)
Quarter: 2025Q2

REPORT INFORMATION
  Report Type: Spontaneous
  Country: US (occurrence: None)
  Receive Date: 20250409
  Receipt Date: 20250409
  Transmission Date: 20250716
  Serious: Yes (Hospitalization)
  Sender: FDA-CTU
  Company Number: None

PATIENT
  Sex: Female

DRUGS (5)
  1. MYCOPHENOLIC ACID [Suspect]
     Active Substance: MYCOPHENOLIC ACID
     Indication: Renal transplant
     Dates: start: 20151027
  2. CALCIUM TAB 600MG [Concomitant]
  3. OMEGA-3 CAP 1000MG [Concomitant]
  4. TACROLIMUS [Concomitant]
     Active Substance: TACROLIMUS
  5. TACROLIMUS A [Concomitant]

REACTIONS (1)
  - Surgery [None]
